FAERS Safety Report 17479070 (Version 4)
Quarter: 2021Q3

REPORT INFORMATION
  Report Type: Report from Study
  Country: JP (occurrence: JP)
  Receive Date: 20200228
  Receipt Date: 20210727
  Transmission Date: 20211014
  Serious: No
  Sender: FDA-Public Use
  Company Number: JP-BAUSCH-BL-2020-005331

PATIENT
  Age: 38 Year
  Sex: Female
  Weight: 49.1 kg

DRUGS (17)
  1. DEMSER [Suspect]
     Active Substance: METYROSINE
     Indication: BLOOD CATECHOLAMINES INCREASED
     Dosage: IN THE MORNING AND EVENING
     Route: 048
     Dates: start: 20191111, end: 20191202
  2. WARFARIN [Concomitant]
     Active Substance: WARFARIN
     Indication: PRODUCT USED FOR UNKNOWN INDICATION
     Dates: end: 20191222
  3. CARVEDILOL. [Concomitant]
     Active Substance: CARVEDILOL
     Indication: PRODUCT USED FOR UNKNOWN INDICATION
  4. FUROSEMIDE. [Concomitant]
     Active Substance: FUROSEMIDE
     Indication: PRODUCT USED FOR UNKNOWN INDICATION
  5. BEPRICOR [Concomitant]
     Active Substance: BEPRIDIL
     Indication: PRODUCT USED FOR UNKNOWN INDICATION
     Dates: end: 20191216
  6. AMIODARONE HYDROCHLORIDE. [Concomitant]
     Active Substance: AMIODARONE HYDROCHLORIDE
     Indication: PRODUCT USED FOR UNKNOWN INDICATION
     Dates: start: 20191226
  7. DEMSER [Suspect]
     Active Substance: METYROSINE
     Dosage: IN THE MORNING, NOON AND EVENING
     Route: 048
     Dates: start: 20191202, end: 20191208
  8. FEBURIC [Concomitant]
     Active Substance: FEBUXOSTAT
     Indication: PRODUCT USED FOR UNKNOWN INDICATION
  9. SAMSCA [Concomitant]
     Active Substance: TOLVAPTAN
     Indication: PRODUCT USED FOR UNKNOWN INDICATION
     Dates: start: 20191205
  10. REVATIO [Concomitant]
     Active Substance: SILDENAFIL CITRATE
     Indication: PRODUCT USED FOR UNKNOWN INDICATION
     Dates: start: 20191227, end: 20191227
  11. DEMSER [Suspect]
     Active Substance: METYROSINE
     Dosage: IN THE MORNING AND EVENING?DURATION 4 MONTHS 15 DAYS
     Route: 048
     Dates: start: 20191231, end: 20200515
  12. NEXIUM [Concomitant]
     Active Substance: ESOMEPRAZOLE MAGNESIUM
     Indication: PRODUCT USED FOR UNKNOWN INDICATION
  13. LOSARTAN K [Concomitant]
     Active Substance: LOSARTAN POTASSIUM
     Indication: PRODUCT USED FOR UNKNOWN INDICATION
     Dates: start: 2019
  14. ELIQUIS [Concomitant]
     Active Substance: APIXABAN
     Indication: PRODUCT USED FOR UNKNOWN INDICATION
     Dates: start: 20191223
  15. SPIRONOLACTONE. [Concomitant]
     Active Substance: SPIRONOLACTONE
     Indication: PRODUCT USED FOR UNKNOWN INDICATION
  16. DEMSER [Suspect]
     Active Substance: METYROSINE
     Dosage: IN THE MORNING, NOON. EVENING AND BEFORE SLEEP
     Route: 048
     Dates: start: 20191209, end: 20191230
  17. ASPARA POTASSIUM [Concomitant]
     Active Substance: POTASSIUM ASPARTATE
     Indication: PRODUCT USED FOR UNKNOWN INDICATION

REACTIONS (3)
  - Psychotic disorder [Unknown]
  - Malaise [Recovered/Resolved]
  - Parkinsonism [Recovered/Resolved]

NARRATIVE: CASE EVENT DATE: 20200515
